FAERS Safety Report 17555957 (Version 1)
Quarter: 2020Q1

REPORT INFORMATION
  Report Type: Spontaneous
  Country: CN (occurrence: CN)
  Receive Date: 20200318
  Receipt Date: 20200318
  Transmission Date: 20200409
  Serious: Yes (Other)
  Sender: FDA-Public Use
  Company Number: CN-SA-2020SA066214

PATIENT
  Sex: Female

DRUGS (3)
  1. ASPIRIN [ACETYLSALICYLIC ACID] [Concomitant]
     Active Substance: ASPIRIN
     Dosage: UNK
     Dates: start: 2015
  2. PLAVIX [Suspect]
     Active Substance: CLOPIDOGREL BISULFATE
     Dosage: UNK THE DOSE WAS DECREASED TO 3/4 TAB BY THE DOCTOR
  3. PLAVIX [Suspect]
     Active Substance: CLOPIDOGREL BISULFATE
     Indication: CORONARY ARTERIAL STENT INSERTION
     Dosage: 1 DF
     Route: 048
     Dates: start: 2015

REACTIONS (2)
  - Contusion [Recovering/Resolving]
  - Haemorrhage subcutaneous [Recovering/Resolving]

NARRATIVE: CASE EVENT DATE: 2017
